FAERS Safety Report 4559457-8 (Version None)
Quarter: 2005Q1

REPORT INFORMATION
  Report Type: 
  Country: None (occurrence: None)
  Receive Date: 20050119
  Receipt Date: 20050110
  Transmission Date: 20050727
  Serious: Yes (Hospitalization)
  Sender: FDA-Public Use
  Company Number: 2005EU000031

PATIENT
  Age: 2 Year
  Sex: Male

DRUGS (2)
  1. PROTOPIC [Suspect]
     Indication: DERMATITIS ATOPIC
     Dosage: D, TOPICAL
     Route: 061
     Dates: start: 20040501, end: 20040501
  2. PROTOPIC [Suspect]
     Indication: DERMATITIS ATOPIC
     Dosage: D, TOPICAL
     Route: 061
     Dates: start: 20041201, end: 20041201

REACTIONS (2)
  - DIABETES MELLITUS INSULIN-DEPENDENT [None]
  - DIABETIC HYPERGLYCAEMIC COMA [None]
